FAERS Safety Report 25485232 (Version 2)
Quarter: 2025Q3

REPORT INFORMATION
  Report Type: Spontaneous
  Country: US (occurrence: US)
  Receive Date: 20250626
  Receipt Date: 20250701
  Transmission Date: 20251021
  Serious: Yes (Hospitalization)
  Sender: ELI LILLY AND COMPANY
  Company Number: US-ELI_LILLY_AND_COMPANY-US202506022062

PATIENT
  Age: 82 Year
  Sex: Female

DRUGS (6)
  1. HUMALOG [Suspect]
     Active Substance: INSULIN LISPRO
     Indication: Diabetes mellitus
     Dosage: 15 U, TID
     Route: 065
  2. HUMALOG [Suspect]
     Active Substance: INSULIN LISPRO
     Indication: Diabetes mellitus
     Dosage: 15 U, TID
     Route: 065
  3. HUMALOG [Suspect]
     Active Substance: INSULIN LISPRO
     Dosage: 14 U, TID
     Route: 065
  4. HUMALOG [Suspect]
     Active Substance: INSULIN LISPRO
     Dosage: 14 U, TID
     Route: 065
  5. BASAGLAR [Suspect]
     Active Substance: INSULIN GLARGINE
     Indication: Product used for unknown indication
     Route: 065
  6. TRESIBA [Concomitant]
     Active Substance: INSULIN DEGLUDEC
     Indication: Blood glucose

REACTIONS (5)
  - Hip fracture [Not Recovered/Not Resolved]
  - Rotator cuff syndrome [Not Recovered/Not Resolved]
  - Pain in extremity [Not Recovered/Not Resolved]
  - Back pain [Not Recovered/Not Resolved]
  - Blood glucose increased [Not Recovered/Not Resolved]

NARRATIVE: CASE EVENT DATE: 20240101
